FAERS Safety Report 9215500 (Version 1)
Quarter: 2013Q2

REPORT INFORMATION
  Report Type: Spontaneous
  Country: US (occurrence: US)
  Receive Date: 20130406
  Receipt Date: 20130406
  Transmission Date: 20140414
  Serious: No
  Sender: FDA-Public Use
  Company Number: US-009507513-1304USA002182

PATIENT
  Age: 77 Year
  Sex: Male

DRUGS (4)
  1. COZAAR [Suspect]
     Indication: HYPERTENSION
     Dosage: 100 MG ONCE DAILY
     Route: 048
  2. LIPITOR [Concomitant]
     Dosage: 40 MG, QD
  3. TRICOR (ADENOSINE) [Concomitant]
     Dosage: 145 MG, QD
  4. TOPROL XL TABLETS [Concomitant]

REACTIONS (1)
  - Vision blurred [Not Recovered/Not Resolved]
